FAERS Safety Report 6443117-2 (Version None)
Quarter: 2009Q4

REPORT INFORMATION
  Report Type: 
  Country: None (occurrence: None)
  Receive Date: 20091117
  Receipt Date: 20091113
  Transmission Date: 20100525
  Serious: Yes (Other)
  Sender: FDA-Public Use
  Company Number: A0793521A

PATIENT
  Age: 36 Year
  Sex: Female
  Weight: 58.6 kg

DRUGS (5)
  1. LAMICTAL [Suspect]
     Dosage: 200MG TWICE PER DAY
     Route: 048
     Dates: start: 20060101
  2. BROMOCRIPTINE [Suspect]
     Dosage: 1.75MG THREE TIMES PER DAY
     Dates: start: 20090401
  3. DEXAMETHASONE [Suspect]
     Indication: FERTILITY INCREASED
     Dosage: .375MG PER DAY
     Dates: start: 20090301
  4. FERTILITY TREATMENT [Suspect]
     Indication: DRUG USE FOR UNKNOWN INDICATION
     Route: 065
  5. NO CONCURRENT MEDICATION [Concomitant]

REACTIONS (8)
  - AURA [None]
  - CONVULSION [None]
  - DRUG INTERACTION [None]
  - DRUG LEVEL DECREASED [None]
  - FEBRILE CONVULSION [None]
  - HEADACHE [None]
  - HYPOAESTHESIA [None]
  - PRODUCT QUALITY ISSUE [None]
